FAERS Safety Report 7426790-1 (Version None)
Quarter: 2011Q2

REPORT INFORMATION
  Report Type: 
  Country: None (occurrence: None)
  Receive Date: 20110420
  Receipt Date: 20110418
  Transmission Date: 20111010
  Serious: Yes (Hospitalization)
  Sender: FDA-Public Use
  Company Number: DE-MERCK-1104DEU00069

PATIENT
  Age: 47 Year
  Sex: Male

DRUGS (13)
  1. PHENPROCOUMON [Concomitant]
     Route: 065
  2. SIMVASTATIN [Concomitant]
     Route: 048
  3. AMLODIPINE [Concomitant]
     Route: 065
  4. INSULIN HUMAN, ISOPHANE [Concomitant]
     Route: 065
  5. PANCREATIN [Concomitant]
     Route: 065
  6. DRONEDARONE HYDROCHLORIDE [Concomitant]
     Route: 065
  7. METOPROLOL [Concomitant]
     Route: 065
  8. ASPIRIN [Concomitant]
     Route: 065
  9. CANDESARTAN CILEXETIL [Concomitant]
     Route: 065
  10. PANTOPRAZOLE [Concomitant]
     Route: 065
  11. JANUVIA [Suspect]
     Indication: DIABETES MELLITUS
     Route: 048
     Dates: start: 20110401
  12. INSULIN LISPRO [Concomitant]
     Route: 065
  13. DOXAZOSIN MESYLATE [Concomitant]
     Route: 065

REACTIONS (2)
  - TREMOR [None]
  - CONVULSION [None]
